FAERS Safety Report 14592192 (Version 1)
Quarter: 2018Q1

REPORT INFORMATION
  Report Type: Other
  Country: IN (occurrence: IN)
  Receive Date: 20180302
  Receipt Date: 20180302
  Transmission Date: 20180509
  Serious: Yes (Life-Threatening, Hospitalization)
  Sender: FDA-Public Use
  Company Number: IN-NOSTRUM LABORATORIES, INC.-2042857

PATIENT
  Age: 17 Year
  Sex: Female

DRUGS (2)
  1. METFORMIN HYDROCHLORIDE EXTENDED-RELEASE [Suspect]
     Active Substance: METFORMIN HYDROCHLORIDE
     Indication: INTENTIONAL OVERDOSE
     Route: 048
  2. SITAGLIPTIN ANTI DIABETES MELLITUS TYPE II DRUG [Concomitant]
     Active Substance: SITAGLIPTIN
     Route: 048

REACTIONS (4)
  - Adjustment disorder with disturbance of conduct [Unknown]
  - Status epilepticus [Recovered/Resolved]
  - Hypoglycaemia [Recovered/Resolved]
  - Intentional overdose [None]
